FAERS Safety Report 5117198-2 (Version None)
Quarter: 2006Q3

REPORT INFORMATION
  Report Type: 
  Country: None (occurrence: None)
  Receive Date: 20060926
  Receipt Date: 20060913
  Transmission Date: 20061208
  Serious: Yes (Other)
  Sender: FDA-Public Use
  Company Number: 2006111758

PATIENT
  Age: 49 Year
  Sex: Female
  Weight: 55.3388 kg

DRUGS (5)
  1. NEURONTIN [Suspect]
     Indication: NEUROPATHY
     Dates: start: 20060201, end: 20060201
  2. TRAMADOL HCL [Suspect]
     Indication: MIGRAINE
     Dosage: (ONCE DAILY)
     Dates: start: 20060901
  3. IBUPROFEN [Suspect]
     Indication: PAIN
     Dosage: (800 MG, EVERY FOUR HOURS)
     Dates: start: 20060901, end: 20060901
  4. AMITRIPTYLINE HCL [Suspect]
     Indication: MIGRAINE
  5. INDERAL LA [Suspect]

REACTIONS (12)
  - ABNORMAL DREAMS [None]
  - EUPHORIC MOOD [None]
  - FOOD CRAVING [None]
  - FOOT OPERATION [None]
  - HALLUCINATION [None]
  - INAPPROPRIATE SCHEDULE OF DRUG ADMINISTRATION [None]
  - MIGRAINE [None]
  - NIGHTMARE [None]
  - PROCEDURAL PAIN [None]
  - THERAPY NON-RESPONDER [None]
  - TREATMENT NONCOMPLIANCE [None]
  - VOMITING [None]
